FAERS Safety Report 8226072-4 (Version None)
Quarter: 2012Q1

REPORT INFORMATION
  Report Type: 
  Country: None (occurrence: None)
  Receive Date: 20120319
  Receipt Date: 20120305
  Transmission Date: 20120608
  Serious: Yes (Hospitalization)
  Sender: FDA-Public Use
  Company Number: 214715

PATIENT
  Age: 41 Year
  Sex: Female
  Weight: 38.3 kg

DRUGS (2)
  1. INNOHEP [Suspect]
     Indication: DEEP VEIN THROMBOSIS
     Dosage: 7000 IU (7000 IU, 1 IN 1 D), SUBCUTANEOUS, 7000 IU (7000 IU, 1 IN 1 D), SUBCUTANEOUS
     Route: 058
     Dates: start: 20110108, end: 20110123
  2. INNOHEP [Suspect]
     Indication: DEEP VEIN THROMBOSIS
     Dosage: 7000 IU (7000 IU, 1 IN 1 D), SUBCUTANEOUS, 7000 IU (7000 IU, 1 IN 1 D), SUBCUTANEOUS
     Route: 058
     Dates: start: 20100831, end: 20110104

REACTIONS (9)
  - DUODENITIS [None]
  - VERTIGO [None]
  - HAEMOGLOBIN DECREASED [None]
  - DIZZINESS [None]
  - GASTRITIS [None]
  - ASTHENIA [None]
  - DUODENAL ULCER [None]
  - STRESS [None]
  - GASTROINTESTINAL HAEMORRHAGE [None]
